FAERS Safety Report 7159642-5 (Version None)
Quarter: 2010Q4

REPORT INFORMATION
  Report Type: 
  Country: None (occurrence: None)
  Receive Date: 20101214
  Receipt Date: 20101026
  Transmission Date: 20110411
  Serious: No
  Sender: FDA-Public Use
  Company Number: US-ASTRAZENECA-2010SE50978

PATIENT
  Sex: Female

DRUGS (1)
  1. CRESTOR [Suspect]
     Route: 048

REACTIONS (5)
  - ARTHRALGIA [None]
  - COUGH [None]
  - DYSPNOEA [None]
  - MUSCLE SPASMS [None]
  - SINUS DISORDER [None]
